FAERS Safety Report 10958690 (Version 2)
Quarter: 2015Q2

REPORT INFORMATION
  Report Type: Report from Study
  Country: PL (occurrence: PL)
  Receive Date: 20150326
  Receipt Date: 20150401
  Transmission Date: 20150821
  Serious: Yes (Hospitalization)
  Sender: FDA-Public Use
  Company Number: PL-AMGEN-POLCT2015026959

PATIENT
  Age: 71 Year
  Sex: Female
  Weight: 41 kg

DRUGS (6)
  1. AMG 785 [Suspect]
     Active Substance: ROMOSOZUMAB
     Indication: OSTEOPOROSIS POSTMENOPAUSAL
     Dosage: 210 MG, UNK
     Route: 058
     Dates: start: 20130919, end: 20140819
  2. ZAFIRON [Concomitant]
     Dosage: 12 MUG, UNK
     Route: 055
     Dates: start: 2011
  3. DENOSUMAB [Suspect]
     Active Substance: DENOSUMAB
     Indication: OSTEOPOROSIS POSTMENOPAUSAL
     Dosage: 1 UNK, UNK
     Route: 058
     Dates: start: 20140918
  4. MAGNESIUM [Concomitant]
     Active Substance: MAGNESIUM
     Dosage: 200 MG, UNK
     Route: 048
     Dates: start: 20130822
  5. CALCIUM [Concomitant]
     Active Substance: CALCIUM
     Dosage: 500 MG, UNK
     Route: 048
     Dates: start: 20130822
  6. VITAMIN D                          /00107901/ [Concomitant]
     Active Substance: ERGOCALCIFEROL
     Dosage: 800 IU, UNK
     Route: 048
     Dates: start: 20130822

REACTIONS (1)
  - Mucosal dryness [Recovered/Resolved]

NARRATIVE: CASE EVENT DATE: 20150309
